FAERS Safety Report 8173686-6 (Version None)
Quarter: 2012Q1

REPORT INFORMATION
  Report Type: 
  Country: None (occurrence: None)
  Receive Date: 20120227
  Receipt Date: 20120221
  Transmission Date: 20120608
  Serious: Yes (Death)
  Sender: FDA-Public Use
  Company Number: ACO_29185_2012

PATIENT
  Age: 48 Year
  Sex: Female

DRUGS (7)
  1. LUNESTA [Concomitant]
  2. LOVAZA [Concomitant]
  3. AMPYRA [Suspect]
     Indication: MULTIPLE SCLEROSIS
     Dosage: 10 MG, BID, ORAL
     Route: 048
     Dates: start: 20100810
  4. VITAMIN D [Concomitant]
  5. SAVELLA [Concomitant]
  6. SPIRONOLACTONE [Concomitant]
  7. PYRIDIUM (PHENAZOPYRIDINE HYDROCHLORIDE) [Concomitant]

REACTIONS (1)
  - DEATH [None]
